FAERS Safety Report 8009529-0 (Version None)
Quarter: 2011Q4

REPORT INFORMATION
  Report Type: 
  Country: None (occurrence: None)
  Receive Date: 20111227
  Receipt Date: 20081111
  Transmission Date: 20120403
  Serious: Yes (Other)
  Sender: FDA-Public Use
  Company Number: GB-SANTEN INC.-INC-11-000187

PATIENT
  Age: 27 Year
  Sex: Male

DRUGS (4)
  1. TIMOLOL MALEATE [Suspect]
     Indication: INTRAOCULAR PRESSURE INCREASED
     Route: 047
  2. LATANOPROST [Suspect]
     Indication: INTRAOCULAR PRESSURE INCREASED
  3. DORZOLAMIDE [Suspect]
     Indication: INTRAOCULAR PRESSURE INCREASED
     Route: 047
  4. PILOCARPINE [Suspect]
     Indication: INTRAOCULAR PRESSURE INCREASED
     Route: 047

REACTIONS (1)
  - INTRAOCULAR PRESSURE FLUCTUATION [None]
